FAERS Safety Report 4711015-8 (Version None)
Quarter: 2005Q3

REPORT INFORMATION
  Report Type: 
  Country: None (occurrence: None)
  Receive Date: 20050711
  Receipt Date: 20050704
  Transmission Date: 20060218
  Serious: Yes (Other)
  Sender: FDA-Public Use
  Company Number: PHNR2005AU01052

PATIENT
  Age: 30 Year
  Sex: Female
  Weight: 66 kg

DRUGS (3)
  1. IMPLANON [Suspect]
     Dates: start: 20030116, end: 20040826
  2. PERINDOPRIL [Concomitant]
  3. TEGRETOL [Suspect]
     Route: 048

REACTIONS (3)
  - ABORTION INDUCED [None]
  - DRUG INTERACTION [None]
  - UNINTENDED PREGNANCY [None]
